FAERS Safety Report 24133958 (Version 2)
Quarter: 2024Q3

REPORT INFORMATION
  Report Type: Spontaneous
  Country: US (occurrence: US)
  Receive Date: 20240724
  Receipt Date: 20240724
  Transmission Date: 20241017
  Serious: Yes (Death, Other)
  Sender: GILEAD
  Company Number: US-GILEAD-2024-0681815

PATIENT
  Age: 53 Year
  Sex: Male

DRUGS (1)
  1. YESCARTA [Suspect]
     Active Substance: AXICABTAGENE CILOLEUCEL
     Indication: Diffuse large B-cell lymphoma
     Dosage: UNK
     Route: 042
     Dates: start: 20240403

REACTIONS (8)
  - Death [Fatal]
  - Disease progression [Unknown]
  - Cytokine release syndrome [Unknown]
  - Immune effector cell-associated neurotoxicity syndrome [Unknown]
  - Acute kidney injury [Unknown]
  - Interleukin level increased [Unknown]
  - Blood creatinine increased [Unknown]
  - Mental status changes [Unknown]

NARRATIVE: CASE EVENT DATE: 20240407
